FAERS Safety Report 9827964 (Version 1)
Quarter: 2013Q4

REPORT INFORMATION
  Report Type: Spontaneous
  Country: US (occurrence: None)
  Receive Date: 20131120
  Receipt Date: 20131120
  Transmission Date: 20140711
  Serious: Yes (Hospitalization)
  Sender: FDA-Public Use
  Company Number: 2013034345

PATIENT
  Age: 37 Year
  Sex: Female
  Weight: 82.56 kg

DRUGS (2)
  1. BERINERT (CI ESTERASE INHIBITOR, HUMAN) [Suspect]
     Indication: HEREDITARY ANGIOEDEMA
     Dates: start: 201211
  2. KALBITOR [Suspect]
     Indication: HEREDITARY ANGIOEDEMA
     Route: 058
     Dates: start: 201211

REACTIONS (2)
  - Hypersensitivity [None]
  - Swelling [None]
